FAERS Safety Report 23756660 (Version 1)
Quarter: 2024Q2

REPORT INFORMATION
  Report Type: Spontaneous
  Country: US (occurrence: None)
  Receive Date: 20240417
  Receipt Date: 20240417
  Transmission Date: 20240715
  Serious: Yes (Life-Threatening, Disabling, Other)
  Sender: FDA-Public Use
  Company Number: None

PATIENT
  Age: 26 Year
  Sex: Female
  Weight: 49.05 kg

DRUGS (1)
  1. BOTOX [Suspect]
     Active Substance: ONABOTULINUMTOXINA
     Indication: Skin cosmetic procedure
     Dates: end: 20230523

REACTIONS (7)
  - Botulism [None]
  - Neurological symptom [None]
  - Injury [None]
  - Visual snow syndrome [None]
  - Photophobia [None]
  - Product use complaint [None]
  - Neuromuscular toxicity [None]

NARRATIVE: CASE EVENT DATE: 20230523
